FAERS Safety Report 4998306-0 (Version None)
Quarter: 2006Q2

REPORT INFORMATION
  Report Type: 
  Country: None (occurrence: None)
  Receive Date: 20060508
  Receipt Date: 20060424
  Transmission Date: 20061013
  Serious: Yes (Hospitalization)
  Sender: FDA-Public Use
  Company Number: 430020M06USA

PATIENT
  Age: 45 Year
  Sex: Male

DRUGS (2)
  1. NOVANTRONE [Suspect]
     Indication: MULTIPLE SCLEROSIS
     Dosage: 26 M G, 1 IN 3 MONTHS
     Dates: start: 20051006, end: 20060407
  2. REBIF [Concomitant]

REACTIONS (3)
  - CONDITION AGGRAVATED [None]
  - MULTIPLE SCLEROSIS [None]
  - MUSCLE SPASMS [None]
